APPROVED DRUG PRODUCT: VALSARTAN
Active Ingredient: VALSARTAN
Strength: 40MG
Dosage Form/Route: TABLET;ORAL
Application: A201618 | Product #001 | TE Code: AB
Applicant: DR REDDYS LABORATORIES LTD
Approved: Oct 5, 2021 | RLD: No | RS: No | Type: RX